FAERS Safety Report 13023244 (Version 4)
Quarter: 2017Q2

REPORT INFORMATION
  Report Type: Report from Study
  Country: US (occurrence: US)
  Receive Date: 20161213
  Receipt Date: 20170403
  Transmission Date: 20170830
  Serious: Yes (Hospitalization, Other)
  Sender: FDA-Public Use
  Company Number: US-CORCEPT THERAPEUTICS INC.-US-2016CRT000761

PATIENT

DRUGS (5)
  1. KORLYM [Suspect]
     Active Substance: MIFEPRISTONE
     Indication: TYPE 2 DIABETES MELLITUS
     Dosage: 600 MG, QD
     Route: 048
     Dates: start: 201604, end: 201611
  2. KORLYM [Suspect]
     Active Substance: MIFEPRISTONE
     Indication: DIABETIC NEUROPATHY
     Dosage: UNK
     Dates: start: 201701, end: 2017
  3. KORLYM [Suspect]
     Active Substance: MIFEPRISTONE
     Indication: ESSENTIAL HYPERTENSION
  4. KORLYM [Suspect]
     Active Substance: MIFEPRISTONE
     Indication: CUSHING^S SYNDROME
     Dosage: 300 MG, QD
     Route: 048
     Dates: start: 201512, end: 201604
  5. KORLYM [Suspect]
     Active Substance: MIFEPRISTONE
     Indication: THYROID CANCER
     Dosage: UNK
     Dates: start: 201703

REACTIONS (5)
  - Wrist fracture [Recovering/Resolving]
  - Coronary artery occlusion [Recovering/Resolving]
  - Cardiac stress test abnormal [Recovering/Resolving]
  - Hand fracture [Recovering/Resolving]
  - Fall [Recovered/Resolved]

NARRATIVE: CASE EVENT DATE: 201611
